FAERS Safety Report 10571385 (Version 3)
Quarter: 2015Q2

REPORT INFORMATION
  Report Type: Spontaneous
  Country: US (occurrence: US)
  Receive Date: 20141107
  Receipt Date: 20150529
  Transmission Date: 20150821
  Serious: Yes (Other)
  Sender: FDA-Public Use
  Company Number: US-BAYER-2014-162311

PATIENT
  Age: 28 Year
  Sex: Female

DRUGS (3)
  1. MIRENA [Suspect]
     Active Substance: LEVONORGESTREL
     Indication: CONTRACEPTION
     Dosage: 20 MCG/24HR, CONT
     Route: 015
     Dates: start: 20081108, end: 20131007
  2. SUBOXONE [Concomitant]
     Active Substance: BUPRENORPHINE HYDROCHLORIDE\NALOXONE HYDROCHLORIDE
  3. DEPAKOTE [Concomitant]
     Active Substance: DIVALPROEX SODIUM

REACTIONS (11)
  - Device issue [None]
  - Infertility female [None]
  - Bipolar disorder [None]
  - Post-traumatic stress disorder [None]
  - Anxiety [None]
  - Depression [None]
  - Injury [None]
  - Abdominal pain lower [None]
  - Uterine perforation [None]
  - Pelvic pain [None]
  - Back pain [None]

NARRATIVE: CASE EVENT DATE: 200811
